FAERS Safety Report 4966986-1 (Version None)
Quarter: 2006Q2

REPORT INFORMATION
  Report Type: 
  Country: None (occurrence: None)
  Receive Date: 20060403
  Receipt Date: 20060118
  Transmission Date: 20061013
  Serious: Yes (Hospitalization)
  Sender: FDA-Public Use
  Company Number: 2006040329

PATIENT
  Age: 44 Year
  Sex: Male

DRUGS (10)
  1. SERTRALINE [Suspect]
     Indication: ILL-DEFINED DISORDER
     Dosage: 50 MG ORAL
     Route: 048
  2. DESYREL [Suspect]
     Indication: ILL-DEFINED DISORDER
     Dosage: 150 MG, ORAL
     Route: 048
  3. ATENOLOL [Suspect]
     Indication: ILL-DEFINED DISORDER
     Dosage: 50 MG, ORAL
     Route: 048
  4. DAPSONE [Suspect]
     Indication: ILL-DEFINED DISORDER
     Dosage: 100 MG/KG, ORAL
     Route: 048
  5. ABACAVIR [Suspect]
     Indication: HIV INFECTION
     Dosage: 600 MG ORAL
     Route: 048
  6. TENOFOVIR (TENOFOVIR) [Suspect]
     Indication: HIV INFECTION
     Dosage: 300 MG, ORAL
     Route: 048
  7. DIDANOSINE [Concomitant]
  8. SEROQUEL [Concomitant]
  9. GABAPENTIN [Concomitant]
  10. METHADONE HCL [Concomitant]

REACTIONS (17)
  - BLOOD BICARBONATE DECREASED [None]
  - BLOOD CHLORIDE INCREASED [None]
  - BLOOD CREATININE INCREASED [None]
  - BLOOD POTASSIUM INCREASED [None]
  - BLOOD UREA INCREASED [None]
  - HALLUCINATION, AUDITORY [None]
  - LABORATORY TEST ABNORMAL [None]
  - LIVER FUNCTION TEST ABNORMAL [None]
  - MALAISE [None]
  - PROTEIN URINE PRESENT [None]
  - RENAL TUBULAR NECROSIS [None]
  - SUICIDAL IDEATION [None]
  - URINARY CASTS [None]
  - URINARY SEDIMENT PRESENT [None]
  - VENOUS PRESSURE JUGULAR [None]
  - VENOUS PRESSURE JUGULAR ABNORMAL [None]
  - WHITE BLOOD CELLS URINE POSITIVE [None]
